FAERS Safety Report 9863299 (Version 2)
Quarter: 2014Q1

REPORT INFORMATION
  Report Type: Spontaneous
  Country: US (occurrence: US)
  Receive Date: 20140203
  Receipt Date: 20140311
  Transmission Date: 20141002
  Serious: No
  Sender: FDA-Public Use
  Company Number: US-PFIZER INC-2014027392

PATIENT
  Age: 66 Year
  Sex: Female

DRUGS (10)
  1. LEVOTHYROXINE SODIUM [Suspect]
     Indication: HYPOTHYROIDISM
     Dosage: 175 UG, 1X/DAY
     Route: 048
  2. CALCIUM ASCORBATE [Concomitant]
     Dosage: 500 MG, 1X/DAY
     Route: 048
     Dates: start: 20131011
  3. BENICAR [Concomitant]
     Dosage: 20 MG, 1X/DAY
     Route: 048
     Dates: start: 20130717
  4. COUMADINE [Concomitant]
     Dosage: 2.5 MG, UNK (AS DIRECTED)
     Dates: start: 20130617
  5. DOXYCYCLINE HYCLATE [Concomitant]
     Dosage: 100 MG, 2X/DAY (ONE TABLET TWICE DAILY FOR 7 DAYS)
     Dates: start: 20140203
  6. DOXYCYCLINE HYCLATE [Concomitant]
     Dosage: 100 MG, 2X/DAY (1 TABLET TWICE DAILY FOR THREE DAYS (TO EXTEND PRIOR 7 DAY COURSE))
     Dates: start: 20140207
  7. LYRICA [Concomitant]
     Dosage: 100 MG, 3X/DAY (1 CAP(S) BY MOUTH 3 TIMES A DAY)
     Route: 048
     Dates: start: 20131227
  8. MUPIROCIN [Concomitant]
     Indication: RASH
     Dosage: UNK (MUPIROCIN 2% TOPICAL OINTMENT,APPLY EVERY EIGHT HOURS)
     Route: 061
     Dates: start: 20140130
  9. OXYCODONE [Concomitant]
     Dosage: 5 MG, AS NEEDED (EVERY 6 HOURS,USE AS SPARINGLY AS POSSIBLE)
     Dates: start: 20140228
  10. SYNTHROID [Concomitant]
     Dosage: 150 UG, 1X/DAY
     Route: 048
     Dates: start: 20131219

REACTIONS (1)
  - Dyspnoea [Recovered/Resolved]
